FAERS Safety Report 22597964 (Version 1)
Quarter: 2023Q2

REPORT INFORMATION
  Report Type: Spontaneous
  Country: CH (occurrence: CH)
  Receive Date: 20230614
  Receipt Date: 20230614
  Transmission Date: 20230722
  Serious: Yes (Hospitalization, Other)
  Sender: FDA-Public Use
  Company Number: None

PATIENT
  Age: 57 Year
  Sex: Female
  Weight: 69.3 kg

DRUGS (19)
  1. OZEMPIC [Suspect]
     Active Substance: SEMAGLUTIDE
     Indication: Product used for unknown indication
     Dosage: 0.5 MG, QD
     Route: 058
     Dates: end: 202304
  2. TORSEMIDE [Suspect]
     Active Substance: TORSEMIDE
     Indication: Hypertension
     Dosage: 5 MG
     Route: 048
     Dates: end: 202304
  3. AMLODIPINE MESYLATE\OLMESARTAN MEDOXOMIL [Suspect]
     Active Substance: AMLODIPINE MESYLATE\OLMESARTAN MEDOXOMIL
     Indication: Hypertension
     Dosage: 1 DOSAGE FORM
     Route: 048
     Dates: end: 202304
  4. BACTRIM [Suspect]
     Active Substance: SULFAMETHOXAZOLE\TRIMETHOPRIM
     Indication: Infection prophylaxis
     Dosage: 1 DOSAGE FORM, 800/160MG(ADMINISTERED MONDAYS, WEDNESDAYS AND FRIDAYS)
     Route: 048
     Dates: end: 202304
  5. PANTOZOL [Suspect]
     Active Substance: PANTOPRAZOLE SODIUM
     Indication: Prophylaxis against gastrointestinal ulcer
     Dosage: 40 MG
     Route: 048
     Dates: end: 202304
  6. DICLOFENAC SODIUM [Suspect]
     Active Substance: DICLOFENAC SODIUM
     Indication: Pain
     Dosage: 1 UNK
     Route: 061
     Dates: end: 202304
  7. DICLOFENAC EPOLAMINE [Suspect]
     Active Substance: DICLOFENAC EPOLAMINE
     Indication: Pain
     Dosage: 1 UNK
     Route: 061
     Dates: end: 202304
  8. HYDROCORTISONE [Concomitant]
     Active Substance: HYDROCORTISONE
     Indication: Product used for unknown indication
     Dosage: 30 MG, QD(10MG 2-1-0-0)
     Route: 048
     Dates: end: 202304
  9. PALEXIA [Concomitant]
     Active Substance: TAPENTADOL HYDROCHLORIDE
     Indication: Product used for unknown indication
     Dosage: 100 MG
     Route: 048
     Dates: end: 202304
  10. PREGABALIN [Concomitant]
     Active Substance: PREGABALIN
     Indication: Product used for unknown indication
     Dosage: 75 MG
     Route: 048
     Dates: end: 202304
  11. FLUCONAZOLE [Concomitant]
     Active Substance: FLUCONAZOLE
     Indication: Infection prophylaxis
     Dosage: 300 MG
     Route: 048
     Dates: end: 202304
  12. DAPAGLIFLOZIN [Concomitant]
     Active Substance: DAPAGLIFLOZIN
     Indication: Diabetes mellitus
     Dosage: 10 MG
     Route: 048
     Dates: end: 202304
  13. VALTREX [Concomitant]
     Active Substance: VALACYCLOVIR HYDROCHLORIDE
     Indication: Infection prophylaxis
     Dosage: 500 MG
     Route: 048
     Dates: end: 202304
  14. NAFTAZONE [Concomitant]
     Active Substance: NAFTAZONE
     Indication: Product used for unknown indication
     Dosage: 30 MG
     Route: 048
     Dates: end: 202304
  15. ANDREAFOL [Concomitant]
     Indication: Product used for unknown indication
     Dosage: 0.40 MG
     Route: 048
     Dates: end: 202304
  16. DIMETHINDENE [Concomitant]
     Active Substance: DIMETHINDENE
     Indication: Product used for unknown indication
     Dosage: 1 UNK
     Route: 061
     Dates: end: 202304
  17. VISCUM ALBUM FRUITING TOP [Concomitant]
     Active Substance: VISCUM ALBUM FRUITING TOP
     Indication: Product used for unknown indication
     Dosage: 10MG MONDAYS AND WEDNESDAYS , 20MG FRIDAYS
     Route: 058
     Dates: end: 202304
  18. FMS CROTALUS COMPLEX [Concomitant]
     Indication: Product used for unknown indication
     Dosage: 1ML MONDAYS AND THURSDAYS
     Route: 058
     Dates: end: 202304
  19. TEPMETKO [Suspect]
     Active Substance: TEPOTINIB HYDROCHLORIDE
     Indication: Lung adenocarcinoma stage IV
     Dosage: 225 MG
     Route: 048
     Dates: start: 20230403, end: 202304

REACTIONS (2)
  - Pancreatitis necrotising [Not Recovered/Not Resolved]
  - Multiple organ dysfunction syndrome [Unknown]

NARRATIVE: CASE EVENT DATE: 20230423
